FAERS Safety Report 4588642-4 (Version None)
Quarter: 2005Q1

REPORT INFORMATION
  Report Type: 
  Country: None (occurrence: None)
  Receive Date: 20050222
  Receipt Date: 20050207
  Transmission Date: 20050727
  Serious: Yes (Life-Threatening, Hospitalization)
  Sender: FDA-Public Use
  Company Number: US-2005-BP-01833BP

PATIENT

DRUGS (1)
  1. SPIRIVA [Suspect]
     Dates: start: 20041101

REACTIONS (1)
  - ARRHYTHMIA [None]
